FAERS Safety Report 10360574 (Version 1)
Quarter: 2014Q3

REPORT INFORMATION
  Report Type: Spontaneous
  Country: IT (occurrence: None)
  Receive Date: 20140731
  Receipt Date: 20140731
  Transmission Date: 20150326
  Serious: Yes (Hospitalization)
  Sender: FDA-Public Use
  Company Number: 2014AP003736

PATIENT
  Age: 1 Year
  Sex: Male

DRUGS (1)
  1. PERINDOPRIL ERBUMINE. [Suspect]
     Active Substance: PERINDOPRIL ERBUMINE
     Indication: ACCIDENTAL EXPOSURE TO PRODUCT BY CHILD
     Dosage: 8 MG, SINGLE, ORAL
     Route: 048
     Dates: start: 20140427, end: 20140427

REACTIONS (3)
  - Somnolence [None]
  - Accidental exposure to product by child [None]
  - Drug administration error [None]

NARRATIVE: CASE EVENT DATE: 20140427
